FAERS Safety Report 8272071-6 (Version None)
Quarter: 2012Q1

REPORT INFORMATION
  Report Type: 
  Country: None (occurrence: None)
  Receive Date: 20120308
  Receipt Date: 20120127
  Transmission Date: 20120608
  Serious: No
  Sender: FDA-Public Use
  Company Number: PHEH2012US002568

PATIENT
  Age: 37 Year
  Sex: Male

DRUGS (5)
  1. ELAVIL [Concomitant]
  2. FANAPT [Suspect]
     Indication: BIPOLAR DISORDER
     Dosage: 8 MG, BID, ORAL
     Route: 048
  3. FANAPT [Suspect]
     Indication: PSYCHOTIC DISORDER
     Dosage: 8 MG, BID, ORAL
     Route: 048
  4. LITHIUM CARBONATE [Concomitant]
  5. COGENTIN [Concomitant]

REACTIONS (3)
  - INSOMNIA [None]
  - FLASHBACK [None]
  - NIGHTMARE [None]
